FAERS Safety Report 4943992-4 (Version None)
Quarter: 2006Q1

REPORT INFORMATION
  Report Type: 
  Country: None (occurrence: None)
  Receive Date: 20060313
  Receipt Date: 20060313
  Transmission Date: 20060701
  Serious: Yes (Hospitalization, Other)
  Sender: FDA-Public Use
  Company Number: None

PATIENT
  Sex: Female
  Weight: 127 kg

DRUGS (6)
  1. CISPLATIN [Suspect]
     Indication: CERVIX CARCINOMA
     Dosage: 40 MG
     Dates: start: 20060123, end: 20060220
  2. GEMCITABINE [Suspect]
     Dosage: 100 MG
     Dates: start: 20060123, end: 20060220
  3. ALTACE [Concomitant]
  4. LONOX [Concomitant]
  5. PAREGORIC [Concomitant]
  6. PROPRANOLOL [Concomitant]

REACTIONS (5)
  - DYSPNOEA EXACERBATED [None]
  - GASTROINTESTINAL TOXICITY [None]
  - HYPOTENSION [None]
  - ORAL INTAKE REDUCED [None]
  - OXYGEN SATURATION DECREASED [None]
